FAERS Safety Report 6218983-6 (Version None)
Quarter: 2009Q2

REPORT INFORMATION
  Report Type: 
  Country: None (occurrence: None)
  Receive Date: 20090608
  Receipt Date: 20090531
  Transmission Date: 20091009
  Serious: Yes (Other)
  Sender: FDA-Public Use
  Company Number: PHHY2009CA19253

PATIENT
  Sex: Female

DRUGS (1)
  1. ACLASTA [Suspect]
     Dosage: UNK
     Dates: start: 20090514, end: 20090514

REACTIONS (5)
  - FOOT OPERATION [None]
  - INFLUENZA [None]
  - INFUSION SITE EXTRAVASATION [None]
  - MYALGIA [None]
  - VEIN DISORDER [None]
